FAERS Safety Report 24815796 (Version 1)
Quarter: 2025Q1

REPORT INFORMATION
  Report Type: Report from Study
  Country: US (occurrence: US)
  Receive Date: 20250107
  Receipt Date: 20250107
  Transmission Date: 20250409
  Serious: Yes (Other)
  Sender: ALEXION PHARMACEUTICALS
  Company Number: US-AstraZeneca-CH-00775993A

PATIENT

DRUGS (4)
  1. TEZEPELUMAB [Suspect]
     Active Substance: TEZEPELUMAB
     Route: 065
  2. TEZEPELUMAB [Suspect]
     Active Substance: TEZEPELUMAB
     Route: 065
  3. TEZEPELUMAB [Suspect]
     Active Substance: TEZEPELUMAB
     Route: 065
  4. TEZEPELUMAB [Suspect]
     Active Substance: TEZEPELUMAB
     Route: 065

REACTIONS (2)
  - Pulmonary congestion [Unknown]
  - Illness [Unknown]
